FAERS Safety Report 7641713-8 (Version None)
Quarter: 2011Q3

REPORT INFORMATION
  Report Type: 
  Country: None (occurrence: None)
  Receive Date: 20110728
  Receipt Date: 20090923
  Transmission Date: 20111222
  Serious: No
  Sender: FDA-Public Use
  Company Number: US-PFIZER INC-US-WYE-H11203609

PATIENT
  Age: 11 Month
  Sex: Male
  Weight: 8.6 kg

DRUGS (1)
  1. PEDIATRIC ADVIL [Suspect]
     Indication: TEETHING
     Dosage: LESS THAN 1.25 MG ONE TIME
     Route: 048
     Dates: start: 20090922, end: 20090922

REACTIONS (2)
  - VOMITING PROJECTILE [None]
  - IRRITABILITY [None]
